FAERS Safety Report 13369459 (Version 1)
Quarter: 2017Q1

REPORT INFORMATION
  Report Type: Spontaneous
  Country: US (occurrence: US)
  Receive Date: 20170324
  Receipt Date: 20170324
  Transmission Date: 20170429
  Serious: Yes (Hospitalization)
  Sender: FDA-Public Use
  Company Number: US-GLAXOSMITHKLINE-US2017GSK041379

PATIENT
  Age: 40 Year
  Sex: Female

DRUGS (5)
  1. FLOLAN [Suspect]
     Active Substance: EPOPROSTENOL SODIUM
     Indication: PULMONARY ARTERIAL HYPERTENSION
     Dosage: UNK, U
  2. TRACLEER [Concomitant]
     Active Substance: BOSENTAN
  3. REVATIO [Concomitant]
     Active Substance: SILDENAFIL CITRATE
  4. FLOLAN [Suspect]
     Active Substance: EPOPROSTENOL SODIUM
     Indication: PULMONARY ARTERIAL HYPERTENSION
     Dosage: 116 DF, CO
     Route: 042
  5. COUMADIN [Concomitant]
     Active Substance: WARFARIN SODIUM

REACTIONS (4)
  - Abdominal pain upper [Unknown]
  - Back pain [Unknown]
  - Cholelithiasis [Recovered/Resolved]
  - Vomiting [Unknown]

NARRATIVE: CASE EVENT DATE: 20170309
